FAERS Safety Report 8579092-4 (Version None)
Quarter: 2012Q3

REPORT INFORMATION
  Report Type: 
  Country: None (occurrence: None)
  Receive Date: 20120808
  Receipt Date: 20120803
  Transmission Date: 20120928
  Serious: Yes (Other)
  Sender: FDA-Public Use
  Company Number: ES-PFIZER INC-2012188758

PATIENT
  Age: 56 Year
  Sex: Female

DRUGS (5)
  1. LEVOTHYROXINE SODIUM [Concomitant]
     Dosage: 75 UG, 1X/DAY
     Route: 048
  2. DULOXETINE HYDROCHLORIDE [Concomitant]
     Dosage: 60 MG, 1X/DAY
     Route: 048
  3. LYRICA [Suspect]
     Dosage: 150 MG, 1X/DAY
     Route: 048
     Dates: start: 20120531
  4. ARCOXIA [Concomitant]
     Dosage: 60 MG, 1X/DAY
     Route: 048
  5. ZARATOR ^PARKE-DAVIS^ [Concomitant]
     Dosage: 20 MG, 1X/DAY
     Route: 048

REACTIONS (2)
  - MACULAR OEDEMA [None]
  - VISUAL ACUITY REDUCED [None]
